FAERS Safety Report 4951126-5 (Version None)
Quarter: 2006Q1

REPORT INFORMATION
  Report Type: 
  Country: None (occurrence: None)
  Receive Date: 20060322
  Receipt Date: 20060317
  Transmission Date: 20060701
  Serious: Yes (Hospitalization)
  Sender: FDA-Public Use
  Company Number: US-MERCK-0603USA03035

PATIENT
  Age: 82 Year
  Sex: Female

DRUGS (3)
  1. FOSAMAX [Suspect]
     Indication: OSTEOPOROSIS
     Route: 048
     Dates: start: 20050101, end: 20060301
  2. DIGOXIN [Concomitant]
     Route: 065
  3. LASIX [Concomitant]
     Route: 065

REACTIONS (1)
  - HAEMORRHAGE [None]
